FAERS Safety Report 18435154 (Version 2)
Quarter: 2020Q4

REPORT INFORMATION
  Report Type: Report from Study
  Country: JP (occurrence: JP)
  Receive Date: 20201028
  Receipt Date: 20201227
  Transmission Date: 20210114
  Serious: Yes (Hospitalization, Other)
  Sender: FDA-Public Use
  Company Number: NVSJ2020JP010937

PATIENT
  Age: 64 Year
  Sex: Female

DRUGS (27)
  1. REVOLADE TAB [Suspect]
     Active Substance: ELTROMBOPAG
     Indication: APLASTIC ANAEMIA
     Dosage: 12.5 MG
     Route: 048
     Dates: start: 20190531, end: 20190604
  2. REVOLADE TAB [Suspect]
     Active Substance: ELTROMBOPAG
     Dosage: 25 MG
     Route: 048
     Dates: start: 20191002, end: 20191008
  3. REVOLADE TAB [Suspect]
     Active Substance: ELTROMBOPAG
     Dosage: 62.5 MG
     Route: 048
     Dates: start: 20191127, end: 20191210
  4. REVOLADE TAB [Suspect]
     Active Substance: ELTROMBOPAG
     Dosage: 75 MG
     Route: 048
     Dates: start: 20191211, end: 20200116
  5. THYMOGLOBULINE [Concomitant]
     Active Substance: LAPINE T-LYMPHOCYTE IMMUNE GLOBULIN
     Indication: APLASTIC ANAEMIA
     Dosage: 150 MG
     Route: 065
     Dates: start: 20190313, end: 20190817
  6. CONCENTRATED RED CELLS [Concomitant]
     Active Substance: HUMAN RED BLOOD CELL
     Indication: PRODUCT USED FOR UNKNOWN INDICATION
     Dosage: 40 ML
     Route: 065
  7. REVOLADE TAB [Suspect]
     Active Substance: ELTROMBOPAG
     Dosage: 100 MG
     Route: 048
     Dates: start: 20200117, end: 20200427
  8. NEORAL [Concomitant]
     Active Substance: CYCLOSPORINE
     Dosage: 150 MG
     Route: 048
     Dates: start: 20190913, end: 20190919
  9. NEORAL [Concomitant]
     Active Substance: CYCLOSPORINE
     Dosage: 60 MG
     Route: 048
     Dates: start: 20191019, end: 20200210
  10. NEORAL [Concomitant]
     Active Substance: CYCLOSPORINE
     Dosage: 120 MG
     Route: 048
     Dates: start: 20200210, end: 20200217
  11. FILGRASTIM [Concomitant]
     Active Substance: FILGRASTIM
     Indication: APLASTIC ANAEMIA
     Dosage: 75 UG
     Route: 065
     Dates: start: 20190813, end: 20200117
  12. PLATELETS [Concomitant]
     Active Substance: HUMAN PLATELET, ALLOGENIC
     Indication: PRODUCT USED FOR UNKNOWN INDICATION
     Dosage: 200 ML
     Route: 065
  13. REVOLADE TAB [Suspect]
     Active Substance: ELTROMBOPAG
     Dosage: 37.5 MG
     Route: 048
     Dates: start: 20191009, end: 20191015
  14. NEORAL [Concomitant]
     Active Substance: CYCLOSPORINE
     Dosage: 180 MG
     Route: 048
     Dates: start: 20190920, end: 20191001
  15. PREDNISOLONE. [Concomitant]
     Active Substance: PREDNISOLONE
     Indication: APLASTIC ANAEMIA
     Dosage: 100 MG
     Route: 065
     Dates: start: 20190813, end: 20190817
  16. REVOLADE TAB [Suspect]
     Active Substance: ELTROMBOPAG
     Dosage: 50 MG
     Route: 048
     Dates: start: 20191016, end: 20191022
  17. NEORAL [Concomitant]
     Active Substance: CYCLOSPORINE
     Indication: APLASTIC ANAEMIA
     Dosage: 120 MG
     Route: 048
     Dates: start: 20190210, end: 20190217
  18. PREDNISOLONE. [Concomitant]
     Active Substance: PREDNISOLONE
     Dosage: 50 MG
     Route: 065
     Dates: start: 20190818, end: 20190818
  19. PREDNISOLONE. [Concomitant]
     Active Substance: PREDNISOLONE
     Dosage: 25 MG
     Route: 065
     Dates: start: 20190820, end: 20190901
  20. REVOLADE TAB [Suspect]
     Active Substance: ELTROMBOPAG
     Dosage: 12.5 MG
     Route: 048
     Dates: start: 20190926, end: 20191001
  21. REVOLADE TAB [Suspect]
     Active Substance: ELTROMBOPAG
     Dosage: 25 MG
     Route: 048
     Dates: start: 20191023, end: 20191119
  22. REVOLADE TAB [Suspect]
     Active Substance: ELTROMBOPAG
     Dosage: 50 MG
     Route: 048
     Dates: start: 20191120, end: 20191126
  23. NEORAL [Concomitant]
     Active Substance: CYCLOSPORINE
     Dosage: 100 MG
     Route: 048
     Dates: start: 20190218, end: 20190316
  24. NEORAL [Concomitant]
     Active Substance: CYCLOSPORINE
     Dosage: 80 MG
     Route: 048
     Dates: start: 20191002, end: 20191018
  25. NEORAL [Concomitant]
     Active Substance: CYCLOSPORINE
     Dosage: 300 MG
     Route: 048
     Dates: start: 20190813, end: 20190817
  26. NEORAL [Concomitant]
     Active Substance: CYCLOSPORINE
     Dosage: 200 MG
     Route: 048
     Dates: start: 20190818, end: 20190912
  27. NEORAL [Concomitant]
     Active Substance: CYCLOSPORINE
     Dosage: 100 MG
     Route: 048
     Dates: start: 20200218, end: 20200316

REACTIONS (4)
  - Malaise [Recovering/Resolving]
  - Haemoglobin decreased [Unknown]
  - White blood cell count decreased [Unknown]
  - Gamma-glutamyltransferase increased [Unknown]

NARRATIVE: CASE EVENT DATE: 20190604
